FAERS Safety Report 14250199 (Version 7)
Quarter: 2018Q3

REPORT INFORMATION
  Report Type: Report from Study
  Country: IT (occurrence: IT)
  Receive Date: 20171205
  Receipt Date: 20180926
  Transmission Date: 20181010
  Serious: Yes (Hospitalization, Other)
  Sender: FDA-Public Use
  Company Number: IT-ROCHE-1703806

PATIENT
  Age: 58 Year
  Sex: Female
  Weight: 85 kg

DRUGS (14)
  1. OMEPRAZOLO [Concomitant]
     Active Substance: OMEPRAZOLE
     Indication: DYSPEPSIA
     Route: 065
     Dates: start: 20140604, end: 20140609
  2. NISTATINA [Concomitant]
     Active Substance: NYSTATIN
     Indication: STOMATITIS
     Route: 065
  3. BROTIZOLAM [Concomitant]
     Active Substance: BROTIZOLAM
     Indication: INSOMNIA
     Route: 065
     Dates: start: 20140611, end: 20140612
  4. TRASTUZUMAB EMTANSINE [Suspect]
     Active Substance: ADO-TRASTUZUMAB EMTANSINE
     Indication: BREAST CANCER METASTATIC
     Dosage: FU CYCLE 36 ON 01/JUL/2016?37 CYCLE ON 29/JUL/2016?SUBSEQUENT DOSE ON : 09/JUN/2017
     Route: 042
     Dates: start: 20130509
  5. TRASTUZUMAB EMTANSINE [Suspect]
     Active Substance: ADO-TRASTUZUMAB EMTANSINE
     Route: 042
  6. DEXAMETHASONE. [Concomitant]
     Active Substance: DEXAMETHASONE
     Indication: NAUSEA
     Route: 065
     Dates: start: 20140605
  7. TRIMETON [Concomitant]
     Active Substance: CHLORPHENIRAMINE MALEATE
     Indication: PREMEDICATION
     Dosage: 10 MG/1 ML 5 X 1 ML VIALS
     Route: 030
     Dates: start: 20130509, end: 20130509
  8. IBUPROFEN. [Concomitant]
     Active Substance: IBUPROFEN
     Indication: COUGH
     Route: 048
     Dates: start: 20150115, end: 20150116
  9. BISOPROLOL [Concomitant]
     Active Substance: BISOPROLOL
     Indication: HYPERTENSION
     Route: 065
  10. FLUCONAZOLE. [Concomitant]
     Active Substance: FLUCONAZOLE
     Indication: DYSPEPSIA
     Route: 065
     Dates: start: 20140612
  11. CEFIXORAL [Concomitant]
     Active Substance: CEFIXIME
     Indication: STOMATITIS
     Route: 065
     Dates: start: 20151217
  12. ZOLPIDEM [Concomitant]
     Active Substance: ZOLPIDEM\ZOLPIDEM TARTRATE
     Indication: INSOMNIA
     Route: 065
     Dates: start: 20140604, end: 20140610
  13. AMOXICILLIN/CLAVULANATE [Concomitant]
     Active Substance: AMOXICILLIN\CLAVULANATE POTASSIUM
     Indication: MASTITIS FUNGAL
     Route: 065
     Dates: start: 20161220, end: 20161227
  14. NISTATINA [Concomitant]
     Active Substance: NYSTATIN
     Indication: MUCOSAL INFLAMMATION
     Route: 065
     Dates: start: 20140606

REACTIONS (43)
  - Tooth abscess [Recovered/Resolved]
  - Blister [Unknown]
  - Aphthous ulcer [Recovered/Resolved]
  - Strangury [Recovered/Resolved]
  - Thrombocytopenia [Not Recovered/Not Resolved]
  - Dysuria [Recovered/Resolved]
  - Dry skin [Unknown]
  - Mucosal inflammation [Recovered/Resolved]
  - Ejection fraction decreased [Recovered/Resolved]
  - Slow speech [Recovered/Resolved]
  - Pseudomonal sepsis [Recovered/Resolved]
  - Cough [Recovered/Resolved]
  - Asthenia [Recovered/Resolved]
  - Oedema peripheral [Unknown]
  - Gingival pain [Recovered/Resolved]
  - Tongue dry [Not Recovered/Not Resolved]
  - Vomiting [Recovered/Resolved]
  - Pyrexia [Recovered/Resolved]
  - Mastitis fungal [Not Recovered/Not Resolved]
  - Odynophagia [Unknown]
  - Pyrexia [Recovered/Resolved]
  - Somnolence [Not Recovered/Not Resolved]
  - Cough [Recovered/Resolved]
  - Productive cough [Recovered/Resolved]
  - Stomatitis [Recovered/Resolved]
  - Sopor [Recovered/Resolved]
  - Epistaxis [Not Recovered/Not Resolved]
  - Pollakiuria [Unknown]
  - Fall [Recovered/Resolved]
  - Varicella [Recovered/Resolved]
  - Cystitis [Recovered/Resolved]
  - Oedema peripheral [Not Recovered/Not Resolved]
  - Mood altered [Unknown]
  - Skin warm [Unknown]
  - Asthenia [Recovered/Resolved]
  - Injury [Recovered/Resolved]
  - Off label use [Unknown]
  - Dysphagia [Recovered/Resolved]
  - Thrombocytopenia [Unknown]
  - Stomatitis [Recovered/Resolved]
  - Pain [Not Recovered/Not Resolved]
  - Cystitis [Recovered/Resolved]
  - Haematoma [Unknown]

NARRATIVE: CASE EVENT DATE: 20130513
